FAERS Safety Report 7995878-9 (Version None)
Quarter: 2011Q4

REPORT INFORMATION
  Report Type: 
  Country: None (occurrence: None)
  Receive Date: 20111220
  Receipt Date: 20111207
  Transmission Date: 20120403
  Serious: Yes (Hospitalization)
  Sender: FDA-Public Use
  Company Number: US-MYLANLABS-2011S1005239

PATIENT
  Age: 39 Year
  Sex: Female

DRUGS (1)
  1. VERAPAMIL HYDROCHLORIDE [Suspect]
     Indication: OVERDOSE
     Dosage: 17 TABLETS OF EXTENDED-RELEASE VERAPAMIL 240MG (TOTAL DOSE 4.08G)
     Route: 065

REACTIONS (7)
  - ATRIOVENTRICULAR BLOCK SECOND DEGREE [None]
  - DYSPNOEA [None]
  - HYPOTENSION [None]
  - CHEST DISCOMFORT [None]
  - SOMNOLENCE [None]
  - OVERDOSE [None]
  - LETHARGY [None]
